FAERS Safety Report 8590115 (Version 7)
Quarter: 2017Q3

REPORT INFORMATION
  Report Type: Report from Study
  Country: FR (occurrence: FR)
  Receive Date: 20120601
  Receipt Date: 20170710
  Transmission Date: 20171128
  Serious: Yes (Death, Life-Threatening, Hospitalization)
  Sender: FDA-Public Use
  Company Number: PHHO2012FR008200

PATIENT
  Age: 63 Year
  Sex: Female
  Weight: 52 kg

DRUGS (6)
  1. RAD 666 / RAD 001A [Suspect]
     Active Substance: EVEROLIMUS
     Dosage: 10 MG, UNK
     Route: 048
     Dates: start: 20120502, end: 20120527
  2. KENZEN [Concomitant]
     Active Substance: CANDESARTAN
     Indication: HYPERTENSION
     Dosage: 4 MG, UNK
     Route: 065
     Dates: start: 2002
  3. OMEPRAZOLE. [Concomitant]
     Active Substance: OMEPRAZOLE
     Indication: GASTROOESOPHAGEAL REFLUX DISEASE
     Dosage: 20 MG, UNK
     Route: 065
  4. SOM230 [Suspect]
     Active Substance: PASIREOTIDE
     Dosage: 60 MG, UNK
     Route: 042
     Dates: start: 20120502, end: 20120502
  5. EZETROL [Concomitant]
     Active Substance: EZETIMIBE
     Indication: HYPERCHOLESTEROLAEMIA
     Dosage: 10 MG, UNK
     Route: 065
     Dates: start: 20120426
  6. SPIRIVA [Concomitant]
     Active Substance: TIOTROPIUM BROMIDE MONOHYDRATE
     Indication: BRONCHITIS
     Dosage: UNK
     Route: 065
     Dates: start: 2007

REACTIONS (1)
  - Ketoacidosis [Fatal]

NARRATIVE: CASE EVENT DATE: 20120527
